FAERS Safety Report 8982971 (Version 2)
Quarter: 2014Q2

REPORT INFORMATION
  Report Type: Report from Study
  Country: MX (occurrence: MX)
  Receive Date: 20121224
  Receipt Date: 20140429
  Transmission Date: 20141212
  Serious: Yes (Other)
  Sender: FDA-Public Use
  Company Number: PHHY2012MX119209

PATIENT
  Age: 43 Year
  Sex: Female

DRUGS (3)
  1. MIFLONIDE [Suspect]
     Indication: ASTHMA
     Dosage: 2 DF (400 UG), DAILY
     Route: 055
     Dates: start: 201104
  2. FORADIL [Suspect]
     Indication: ASTHMA
     Dosage: 2 DF, DAILY
     Dates: start: 201104, end: 2013
  3. COMBIVENT [Concomitant]
     Indication: ASTHMA
     Dosage: 1 DF, DAILY
     Route: 055

REACTIONS (4)
  - Abdominal hernia [Recovered/Resolved]
  - Asphyxia [Unknown]
  - Fatigue [Recovered/Resolved]
  - Dysphonia [Recovered/Resolved]
